FAERS Safety Report 16135324 (Version 3)
Quarter: 2019Q2

REPORT INFORMATION
  Report Type: Spontaneous
  Country: US (occurrence: US)
  Receive Date: 20190329
  Receipt Date: 20190627
  Transmission Date: 20190711
  Serious: No
  Sender: FDA-Public Use
  Company Number: US-SA-2019SA082281

PATIENT
  Age: 52 Year
  Sex: Male

DRUGS (1)
  1. PRALUENT [Suspect]
     Active Substance: ALIROCUMAB
     Indication: TYPE IIA HYPERLIPIDAEMIA
     Dosage: 150 MG, QOW
     Route: 058
     Dates: start: 20190227

REACTIONS (8)
  - Pruritus [Unknown]
  - Injection site pruritus [Unknown]
  - Pain in extremity [Unknown]
  - Erythema [Unknown]
  - Injection site pain [Unknown]
  - Injection site erythema [Unknown]
  - Nasal congestion [Unknown]
  - Injection site inflammation [Unknown]
